FAERS Safety Report 25056399 (Version 1)
Quarter: 2025Q1

REPORT INFORMATION
  Report Type: Spontaneous
  Country: PL (occurrence: PL)
  Receive Date: 20250310
  Receipt Date: 20250310
  Transmission Date: 20250409
  Serious: Yes (Hospitalization, Congenital Anomaly, Other)
  Sender: NOVO NORDISK
  Company Number: PL-NOVOPROD-1382800

PATIENT
  Age: 29 Year
  Sex: Female
  Weight: 118 kg

DRUGS (5)
  1. NOVORAPID [Suspect]
     Active Substance: INSULIN ASPART
     Indication: Gestational diabetes
     Dosage: 8 IU, QD(4 UNITS TO MAIN MEALS, LATER 4 UNITS WITH EACH MEAL)
     Route: 058
  2. INSULIN DETEMIR [Suspect]
     Active Substance: INSULIN DETEMIR
     Indication: Gestational diabetes
     Dosage: 16 IU, QD
     Route: 058
  3. ATOSIBAN [Concomitant]
     Active Substance: ATOSIBAN
     Route: 042
  4. BETAMETHASONE [Concomitant]
     Active Substance: BETAMETHASONE
     Dosage: 12 MG, BID
  5. ENOXAPARIN [Concomitant]
     Active Substance: ENOXAPARIN
     Indication: Anticoagulant therapy
     Dosage: 40 MG, QD

REACTIONS (6)
  - Ketonuria [Unknown]
  - Malaise [Unknown]
  - Large for dates baby [Unknown]
  - Oligohydramnios [Unknown]
  - Blood glucose increased [Unknown]
  - Maternal exposure during pregnancy [Recovered/Resolved]
